FAERS Safety Report 19127401 (Version 2)
Quarter: 2021Q2

REPORT INFORMATION
  Report Type: Report from Study
  Country: US (occurrence: US)
  Receive Date: 20210413
  Receipt Date: 20210513
  Transmission Date: 20210717
  Serious: No
  Sender: FDA-Public Use
  Company Number: US-AGIOS-2104US02661

PATIENT

DRUGS (6)
  1. LYRICA [Concomitant]
     Active Substance: PREGABALIN
  2. DRONABINOL. [Concomitant]
     Active Substance: DRONABINOL
  3. MS CONTIN [Concomitant]
     Active Substance: MORPHINE SULFATE
  4. DILAUDID [Concomitant]
     Active Substance: HYDROMORPHONE HYDROCHLORIDE
  5. EFFEXOR XR [Concomitant]
     Active Substance: VENLAFAXINE HYDROCHLORIDE
  6. TIBSOVO [Suspect]
     Active Substance: IVOSIDENIB
     Indication: CHOLANGIOCARCINOMA
     Dosage: 250 MILLIGRAM, 2 TABLETS (500 MG), QD
     Route: 048

REACTIONS (4)
  - Vomiting [Unknown]
  - Headache [Unknown]
  - Off label use [Unknown]
  - Nausea [Unknown]
